FAERS Safety Report 18917119 (Version 2)
Quarter: 2021Q1

REPORT INFORMATION
  Report Type: Spontaneous
  Country: KR (occurrence: KR)
  Receive Date: 20210219
  Receipt Date: 20210226
  Transmission Date: 20210420
  Serious: Yes (Death, Other)
  Sender: FDA-Public Use
  Company Number: KR-GILEAD-2021-0517580

PATIENT
  Sex: Male
  Weight: 70 kg

DRUGS (36)
  1. LIXIANA [Concomitant]
     Active Substance: EDOXABAN TOSYLATE
  2. KCL [Concomitant]
     Active Substance: POTASSIUM CHLORIDE
  3. EPINEPHRINE. [Concomitant]
     Active Substance: EPINEPHRINE
  4. HINECHOL [Concomitant]
  5. LECLEAN [Concomitant]
  6. CONCOR [Concomitant]
     Active Substance: BISOPROLOL FUMARATE
  7. WINUF PERI [Concomitant]
     Active Substance: AMINO ACIDS\DEXTROSE\ELECTROLYTES NOS\SOYBEAN OIL\VITAMINS
  8. MAGMIL [Concomitant]
     Active Substance: MAGNESIUM HYDROXIDE
  9. TRIDOL [Concomitant]
     Active Substance: TRAMADOL HYDROCHLORIDE
  10. MACPERAN [Concomitant]
     Active Substance: METOCLOPRAMIDE HYDROCHLORIDE
  11. NEXIUM I.V. [Concomitant]
     Active Substance: ESOMEPRAZOLE SODIUM
  12. CALCIUM CHLORIDE. [Concomitant]
     Active Substance: CALCIUM CHLORIDE
  13. MEROPEN [MEROPENEM] [Concomitant]
     Active Substance: MEROPENEM
  14. NORMAL SALINE [Concomitant]
     Active Substance: SODIUM CHLORIDE
  15. ESOMEZOL [ESOMEPRAZOLE MAGNESIUM] [Concomitant]
  16. TACENOL [Concomitant]
  17. SEROQUEL [Concomitant]
     Active Substance: QUETIAPINE FUMARATE
  18. NORPIN A [Concomitant]
  19. DEXAMETHASONE. [Concomitant]
     Active Substance: DEXAMETHASONE
  20. HARNAL [Concomitant]
     Active Substance: TAMSULOSIN HYDROCHLORIDE
  21. GABAPENTIN. [Concomitant]
     Active Substance: GABAPENTIN
  22. AIRTAL [Concomitant]
     Active Substance: ACECLOFENAC
  23. TABAXIN [Concomitant]
     Active Substance: PIPERACILLIN SODIUM\TAZOBACTAM SODIUM
  24. TAPOCIN [Concomitant]
  25. ALBUMIN [Concomitant]
     Active Substance: ALBUMIN HUMAN
  26. MOTILITONE [Concomitant]
     Active Substance: HERBALS
  27. SODIUM BICARBONATE. [Concomitant]
     Active Substance: SODIUM BICARBONATE
  28. VEKLURY [Suspect]
     Active Substance: REMDESIVIR
     Dosage: 100 MG, QD
     Route: 042
     Dates: start: 20210206, end: 20210209
  29. TAMIPOOL [Concomitant]
     Active Substance: VITAMINS
  30. DUPHALAC [Concomitant]
     Active Substance: LACTULOSE
  31. PHOSTEN [Concomitant]
  32. VEKLURY [Suspect]
     Active Substance: REMDESIVIR
     Indication: COVID-19
     Dosage: 200 MG, ONCE
     Route: 042
     Dates: start: 20210205, end: 20210205
  33. DENOGAN [Concomitant]
     Active Substance: PROPACETAMOL HYDROCHLORIDE
  34. DIGOXIN. [Concomitant]
     Active Substance: DIGOXIN
  35. FINIPENEM [Concomitant]
  36. VASOPRESSIN. [Concomitant]
     Active Substance: VASOPRESSIN

REACTIONS (2)
  - Pneumonia aspiration [Fatal]
  - Septic shock [Fatal]

NARRATIVE: CASE EVENT DATE: 20210213
